FAERS Safety Report 10178633 (Version 2)
Quarter: 2014Q3

REPORT INFORMATION
  Report Type: Spontaneous
  Country: NO (occurrence: NO)
  Receive Date: 20140519
  Receipt Date: 20140826
  Transmission Date: 20150326
  Serious: Yes (Hospitalization)
  Sender: FDA-Public Use
  Company Number: NO-JNJFOC-20140507071

PATIENT
  Age: 38 Year
  Sex: Female

DRUGS (3)
  1. CERAZETTE [Concomitant]
     Active Substance: DESOGESTREL
     Route: 048
  2. REMICADE [Suspect]
     Active Substance: INFLIXIMAB
     Indication: COLITIS ULCERATIVE
     Route: 042
     Dates: start: 2009
  3. ASACOL [Concomitant]
     Active Substance: MESALAMINE
     Route: 048
     Dates: start: 2008

REACTIONS (1)
  - Mastitis [Not Recovered/Not Resolved]

NARRATIVE: CASE EVENT DATE: 20140328
